FAERS Safety Report 24753647 (Version 1)
Quarter: 2024Q4

REPORT INFORMATION
  Report Type: Spontaneous
  Country: US (occurrence: US)
  Receive Date: 20241219
  Receipt Date: 20241219
  Transmission Date: 20250115
  Serious: No
  Sender: MERCK
  Company Number: US-009507513-2412USA004603

PATIENT

DRUGS (2)
  1. RECARBRIO [Suspect]
     Active Substance: CILASTATIN\IMIPENEM ANHYDROUS\RELEBACTAM ANHYDROUS
     Dosage: 2.5 GRAMS
  2. SALIN [Concomitant]
     Dosage: 100 ML

REACTIONS (4)
  - Incorrect dose administered [Unknown]
  - Product use issue [Unknown]
  - Incorrect product administration duration [Unknown]
  - No adverse event [Unknown]
